FAERS Safety Report 9785494 (Version 1)
Quarter: 2013Q4

REPORT INFORMATION
  Report Type: Spontaneous
  Country: US (occurrence: None)
  Receive Date: 20131226
  Receipt Date: 20131226
  Transmission Date: 20140711
  Serious: Yes (Disabling)
  Sender: FDA-Public Use
  Company Number: None

PATIENT
  Age: 28 Year
  Sex: Male
  Weight: 77.11 kg

DRUGS (1)
  1. FINASTERIDE [Suspect]
     Indication: ALOPECIA
     Route: 048
     Dates: start: 20120102, end: 20120405

REACTIONS (9)
  - Erectile dysfunction [None]
  - Libido decreased [None]
  - Cognitive disorder [None]
  - Memory impairment [None]
  - Hormone level abnormal [None]
  - Ejaculation disorder [None]
  - Fatigue [None]
  - Insomnia [None]
  - Androgen deficiency [None]
